FAERS Safety Report 23039464 (Version 2)
Quarter: 2023Q4

REPORT INFORMATION
  Report Type: Spontaneous
  Country: CA (occurrence: CA)
  Receive Date: 20231006
  Receipt Date: 20231121
  Transmission Date: 20240110
  Serious: Yes (Other)
  Sender: FDA-Public Use
  Company Number: CA-PFIZER INC-202201399881

PATIENT
  Age: 76 Year
  Sex: Female
  Weight: 56 kg

DRUGS (7)
  1. RUXIENCE [Suspect]
     Active Substance: RITUXIMAB-PVVR
     Indication: Rheumatoid arthritis
     Dosage: 1000 MG, DAY 1 AND DAY 15 (DAY 1 INFUSION)
     Route: 042
     Dates: start: 20230201, end: 20230201
  2. RUXIENCE [Suspect]
     Active Substance: RITUXIMAB-PVVR
     Dosage: 1000 MG, DAY 1 AND DAY 15
     Route: 042
     Dates: start: 20230201, end: 20230217
  3. RUXIENCE [Suspect]
     Active Substance: RITUXIMAB-PVVR
     Dosage: 1000 MG, DAY 1 AND DAY 15(DAY 15)
     Route: 042
     Dates: start: 20230217
  4. RUXIENCE [Suspect]
     Active Substance: RITUXIMAB-PVVR
     Dosage: 1000 MG, DAY 1 AND DAY 15, NOT STARTED YET
     Route: 042
  5. ACETAMINOPHEN [Concomitant]
     Active Substance: ACETAMINOPHEN
     Indication: Premedication
     Dosage: UNK
     Dates: start: 20230201, end: 20230201
  6. DIPHENHYDRAMINE [Concomitant]
     Active Substance: DIPHENHYDRAMINE
     Indication: Premedication
     Dosage: 50 MG
     Route: 048
     Dates: start: 20230201, end: 20230201
  7. METHYLPREDNISOLONE [Concomitant]
     Active Substance: METHYLPREDNISOLONE
     Indication: Premedication
     Dosage: 100 MG
     Route: 042
     Dates: start: 20230201, end: 20230201

REACTIONS (10)
  - Tooth extraction [Unknown]
  - Feeling hot [Recovered/Resolved]
  - Flushing [Recovered/Resolved]
  - Abdominal pain [Recovered/Resolved]
  - Erythema [Recovered/Resolved]
  - Abdominal pain upper [Recovered/Resolved]
  - Feeling cold [Recovered/Resolved]
  - Pain in extremity [Unknown]
  - Visual impairment [Recovering/Resolving]
  - Vision blurred [Recovering/Resolving]

NARRATIVE: CASE EVENT DATE: 20230101
